FAERS Safety Report 25079750 (Version 1)
Quarter: 2025Q1

REPORT INFORMATION
  Report Type: Spontaneous
  Country: US (occurrence: US)
  Receive Date: 20250314
  Receipt Date: 20250314
  Transmission Date: 20250409
  Serious: No
  Sender: KYOWA
  Company Number: US-KYOWAKIRIN-2025KK004722

PATIENT

DRUGS (4)
  1. NOURIANZ [Suspect]
     Active Substance: ISTRADEFYLLINE
     Indication: Parkinson^s disease
     Dosage: 20 MG, QD (TAKE 1 TABLET BY MOUTH AT BEDTIME)
     Route: 048
     Dates: start: 20241227
  2. ASPIRIN [Concomitant]
     Active Substance: ASPIRIN
     Indication: Product used for unknown indication
     Route: 065
  3. SINEMET [Concomitant]
     Active Substance: CARBIDOPA\LEVODOPA
     Indication: Product used for unknown indication
     Route: 065
  4. VITAMIN D NOS [Concomitant]
     Active Substance: CHOLECALCIFEROL\ERGOCALCIFEROL
     Indication: Product used for unknown indication
     Route: 065

REACTIONS (3)
  - Eye swelling [Not Recovered/Not Resolved]
  - Mouth swelling [Not Recovered/Not Resolved]
  - Dyspnoea [Not Recovered/Not Resolved]
